FAERS Safety Report 7725972-9 (Version None)
Quarter: 2011Q3

REPORT INFORMATION
  Report Type: 
  Country: None (occurrence: None)
  Receive Date: 20110902
  Receipt Date: 20110825
  Transmission Date: 20111222
  Serious: Yes (Other)
  Sender: FDA-Public Use
  Company Number: US-AMGEN-USASP2011035625

PATIENT
  Age: 71 Year
  Sex: Female

DRUGS (2)
  1. ENBREL [Suspect]
     Indication: PSORIATIC ARTHROPATHY
     Dosage: 50 MG, QWK
     Dates: start: 20110622
  2. ENBREL [Suspect]
     Indication: OSTEOARTHRITIS
     Dosage: 50 MG, QWK
     Dates: start: 20110706

REACTIONS (4)
  - ACCIDENTAL OVERDOSE [None]
  - INJURY ASSOCIATED WITH DEVICE [None]
  - INJECTION SITE REACTION [None]
  - INJECTION SITE PAIN [None]
